FAERS Safety Report 6668530-X (Version None)
Quarter: 2010Q2

REPORT INFORMATION
  Report Type: 
  Country: None (occurrence: None)
  Receive Date: 20100406
  Receipt Date: 20100401
  Transmission Date: 20101027
  Serious: Yes (Hospitalization)
  Sender: FDA-Public Use
  Company Number: US-B.I. PHARMACEUTICALS,INC./RIDGEFIELD-2010-BP-03809BP

PATIENT
  Age: 56 Year
  Sex: Male

DRUGS (5)
  1. ATROVENT HFA [Suspect]
     Indication: EMPHYSEMA
     Dates: start: 20070101
  2. SPIRIVA [Suspect]
     Indication: EMPHYSEMA
  3. XOPENEX [Concomitant]
     Indication: EMPHYSEMA
     Dates: start: 20070101
  4. NEBULIZER [Concomitant]
     Indication: EMPHYSEMA
  5. NEXIUM [Concomitant]
     Indication: ABDOMINAL DISCOMFORT

REACTIONS (2)
  - DYSPNOEA [None]
  - OESOPHAGEAL ULCER HAEMORRHAGE [None]
